FAERS Safety Report 9298079 (Version 1)
Quarter: 2012Q4

REPORT INFORMATION
  Report Type: Spontaneous
  Country: DK (occurrence: None)
  Receive Date: 20121024
  Receipt Date: 20121024
  Transmission Date: 20130627
  Serious: Yes (Life-Threatening, Hospitalization)
  Sender: FDA-Public Use
  Company Number: 2010DK0039

PATIENT
  Age: 6 Year
  Sex: Female
  Weight: 21 kg

DRUGS (1)
  1. ORFADIN [Suspect]
     Dosage: 0.95 mg/kg (20 mg, 1 in 1 D)
     Dates: start: 20040727

REACTIONS (2)
  - Hepatocellular carcinoma [None]
  - Liver transplant [None]
